FAERS Safety Report 21280364 (Version 1)
Quarter: 2022Q3

REPORT INFORMATION
  Report Type: Spontaneous
  Country: US (occurrence: US)
  Receive Date: 20220901
  Receipt Date: 20220901
  Transmission Date: 20221027
  Serious: No
  Sender: FDA-Public Use
  Company Number: US-BAYER-2022A122567

PATIENT
  Age: 92 Year
  Sex: Male

DRUGS (2)
  1. MIRALAX [Suspect]
     Active Substance: POLYETHYLENE GLYCOL 3350
     Indication: Gastrointestinal disorder
     Dosage: 1 DF
     Route: 048
  2. COLACE [Suspect]
     Active Substance: DOCUSATE SODIUM
     Indication: Constipation prophylaxis
     Route: 065

REACTIONS (2)
  - Anal incontinence [Not Recovered/Not Resolved]
  - Contraindicated product administered [Unknown]
